FAERS Safety Report 15417367 (Version 1)
Quarter: 2018Q3

REPORT INFORMATION
  Report Type: Spontaneous
  Country: ES (occurrence: ES)
  Receive Date: 20180924
  Receipt Date: 20180924
  Transmission Date: 20181010
  Serious: Yes (Other)
  Sender: FDA-Public Use
  Company Number: ES-CELGENEUS-ESP-20180906299

PATIENT
  Age: 46 Year
  Sex: Female

DRUGS (2)
  1. ELETRIPTAN. [Concomitant]
     Active Substance: ELETRIPTAN
     Indication: MIGRAINE
     Route: 065
  2. OTEZLA [Suspect]
     Active Substance: APREMILAST
     Indication: APHTHOUS ULCER
     Dosage: SAME DOSE AS FOR INDICATION OF PSORIASIS
     Route: 048
     Dates: start: 20180720, end: 20180911

REACTIONS (1)
  - Depression suicidal [Recovering/Resolving]

NARRATIVE: CASE EVENT DATE: 201808
